FAERS Safety Report 24914184 (Version 2)
Quarter: 2025Q1

REPORT INFORMATION
  Report Type: Report from Study
  Country: US (occurrence: US)
  Receive Date: 20250202
  Receipt Date: 20250212
  Transmission Date: 20250408
  Serious: Yes (Hospitalization, Other)
  Sender: ABBVIE
  Company Number: US-ABBVIE-6109402

PATIENT
  Age: 34 Year
  Sex: Female
  Weight: 58.9 kg

DRUGS (1)
  1. SKYRIZI [Suspect]
     Active Substance: RISANKIZUMAB-RZAA
     Indication: Crohn^s disease
     Route: 058
     Dates: start: 20230605, end: 202409

REACTIONS (2)
  - Intestinal stenosis [Recovering/Resolving]
  - Fistula [Recovered/Resolved]

NARRATIVE: CASE EVENT DATE: 20230901
